FAERS Safety Report 8933261 (Version 1)
Quarter: 2012Q4

REPORT INFORMATION
  Report Type: 
  Country: IT (occurrence: IT)
  Receive Date: 20121129
  Receipt Date: 20121129
  Transmission Date: 20130627
  Serious: Yes (Hospitalization)
  Sender: FDA-Public Use
  Company Number: IT-NOVOPROD-364604

PATIENT
  Age: 99 Year
  Sex: Female

DRUGS (4)
  1. NOVONORM [Suspect]
     Indication: DIABETES MELLITUS
     Dosage: 3 Tab, qd
     Route: 048
     Dates: start: 20120820, end: 20121108
  2. OMEPRAZOLE [Suspect]
     Indication: PRODUCT USED FOR UNKNOWN INDICATION
  3. CARDIOASPIRIN [Concomitant]
     Dosage: 1 tablet qd
  4. ADALAT CRONO [Concomitant]
     Dosage: 30 mg, UNK

REACTIONS (3)
  - Hypoglycaemia [Recovered/Resolved]
  - Hyperhidrosis [Recovered/Resolved]
  - Sopor [Recovered/Resolved]
